FAERS Safety Report 4662378-3 (Version None)
Quarter: 2005Q2

REPORT INFORMATION
  Report Type: 
  Country: None (occurrence: None)
  Receive Date: 20050512
  Receipt Date: 20050502
  Transmission Date: 20051028
  Serious: Yes (Other)
  Sender: FDA-Public Use
  Company Number: 2005-01558

PATIENT
  Age: 37 Year
  Sex: Female

DRUGS (6)
  1. OXYTROL [Suspect]
     Indication: HYPERTONIC BLADDER
  2. DANTROLENE SODIUM [Suspect]
     Indication: MUSCLE SPASTICITY
     Dosage: 125 MG; 100 MG, DAILY, ORAL; 125 MG, DAILY; 25 MG DAILY
  3. CARBAMAZEPINE [Suspect]
     Indication: BURNING SENSATION
     Dosage: 1000 MG, DAILY, ORAL; 600 MG, DAILY; 400 MG, DAILY, ORAL
  4. BACLOFEN [Concomitant]
  5. ATENOLOL [Concomitant]
  6. FLUVOXAMINE MALEATE [Concomitant]

REACTIONS (2)
  - DRUG INTERACTION POTENTIATION [None]
  - DRUG TOXICITY [None]
